FAERS Safety Report 24443597 (Version 2)
Quarter: 2024Q4

REPORT INFORMATION
  Report Type: Spontaneous
  Country: SE (occurrence: SE)
  Receive Date: 20241016
  Receipt Date: 20241017
  Transmission Date: 20250114
  Serious: No
  Sender: ROCHE
  Company Number: SE-MLMSERVICE-20170405-0674567-1

PATIENT
  Age: 49 Year
  Sex: Female

DRUGS (9)
  1. RITUXIMAB [Suspect]
     Active Substance: RITUXIMAB
     Indication: Nephritic syndrome
     Dosage: 600 MG X 4 DURING 2 MONTHS (326 MG/M2) REPEATED THERAPY WITH RTX 500 MG (272 MG/M2) X 1 AFTER 15 MON
     Route: 041
  2. RITUXIMAB [Suspect]
     Active Substance: RITUXIMAB
     Indication: Nephrotic syndrome
  3. MYCOPHENOLATE MOFETIL [Suspect]
     Active Substance: MYCOPHENOLATE MOFETIL
     Indication: Immunosuppressant drug therapy
     Route: 065
  4. METHOTREXATE [Suspect]
     Active Substance: METHOTREXATE
     Indication: Immunosuppressant drug therapy
     Route: 065
  5. PREDNISOLONE [Suspect]
     Active Substance: PREDNISOLONE
     Indication: Immunosuppressant drug therapy
     Route: 065
  6. METHYLPREDNISOLONE [Suspect]
     Active Substance: METHYLPREDNISOLONE
     Indication: Immunosuppressant drug therapy
     Route: 042
  7. AZATHIOPRINE [Suspect]
     Active Substance: AZATHIOPRINE
     Indication: Immunosuppressant drug therapy
     Route: 065
  8. BETAMETHASONE [Concomitant]
     Active Substance: BETAMETHASONE
     Indication: Immunosuppressant drug therapy
     Dosage: 2 WEEKS, TAPERED OVER 19 MONTHS
     Route: 048
  9. BETAMETHASONE [Concomitant]
     Active Substance: BETAMETHASONE
     Route: 042

REACTIONS (1)
  - Herpes simplex [Unknown]
